FAERS Safety Report 10062959 (Version 1)
Quarter: 2014Q2

REPORT INFORMATION
  Report Type: Spontaneous
  Country: US (occurrence: US)
  Receive Date: 20140407
  Receipt Date: 20140407
  Transmission Date: 20141212
  Serious: No
  Sender: FDA-Public Use
  Company Number: US-BAYER-2014-049105

PATIENT
  Age: 67 Year
  Sex: Female

DRUGS (1)
  1. ALEVE GELCAPS [Suspect]
     Indication: ANALGESIC THERAPY
     Dosage: 2 DF, BID
     Route: 048
     Dates: start: 201403, end: 20140328

REACTIONS (2)
  - Weight increased [Not Recovered/Not Resolved]
  - Extra dose administered [None]
